FAERS Safety Report 12903383 (Version 1)
Quarter: 2016Q4

REPORT INFORMATION
  Report Type: Not Available
  Country: US (occurrence: US)
  Receive Date: 20161102
  Receipt Date: 20161102
  Transmission Date: 20170207
  Serious: Yes (Hospitalization)
  Sender: FDA-Public Use
  Company Number: US-CLARIONBRANDS-2016-US-008601

PATIENT
  Age: 56 Year
  Sex: Male
  Weight: 72.58 kg

DRUGS (1)
  1. ABSORBINE JR. PLUS [Suspect]
     Active Substance: MENTHOL
     Dosage: APPLIED TO NECK. SHOULDERS AND LEGS
     Route: 061
     Dates: start: 20161021

REACTIONS (5)
  - Application site erythema [Not Recovered/Not Resolved]
  - Application site infection [Not Recovered/Not Resolved]
  - Intentional product misuse [Unknown]
  - Application site pain [Not Recovered/Not Resolved]
  - Application site swelling [Not Recovered/Not Resolved]

NARRATIVE: CASE EVENT DATE: 20161021
